FAERS Safety Report 4656908-5 (Version None)
Quarter: 2005Q2

REPORT INFORMATION
  Report Type: 
  Country: None (occurrence: None)
  Receive Date: 20050408
  Receipt Date: 20050124
  Transmission Date: 20051028
  Serious: No
  Sender: FDA-Public Use
  Company Number: 230302K05USA

PATIENT
  Age: 37 Year
  Sex: Male

DRUGS (3)
  1. REBIF [Suspect]
     Indication: MULTIPLE SCLEROSIS
     Dosage: 22 MCG, 3 IN 1 WEEKS, SUBCUTANEOUS
     Route: 058
     Dates: start: 20041218
  2. BACLOFEN [Concomitant]
  3. TYLENOL (PARACETAMOL) [Concomitant]

REACTIONS (3)
  - DIZZINESS [None]
  - MUSCLE TIGHTNESS [None]
  - MYALGIA [None]
